FAERS Safety Report 24394497 (Version 1)
Quarter: 2024Q4

REPORT INFORMATION
  Report Type: Spontaneous
  Country: FR (occurrence: FR)
  Receive Date: 20241004
  Receipt Date: 20241004
  Transmission Date: 20250114
  Serious: Yes (Hospitalization, Other)
  Sender: CELLTRION
  Company Number: None

PATIENT

DRUGS (1)
  1. RITUXIMAB [Suspect]
     Active Substance: RITUXIMAB
     Indication: Cryoglobulinaemia
     Dosage: 1 G, EVERY 15 DAYS;RITUXIMAB 1G J1/J15
     Route: 042
     Dates: start: 20240131, end: 20240223

REACTIONS (3)
  - Cryoglobulinaemia [Recovered/Resolved]
  - Condition aggravated [Recovered/Resolved]
  - Intentional product use issue [Unknown]

NARRATIVE: CASE EVENT DATE: 20240215
